FAERS Safety Report 9230023 (Version 1)
Quarter: 2013Q2

REPORT INFORMATION
  Report Type: Spontaneous
  Country: US (occurrence: US)
  Receive Date: 20130415
  Receipt Date: 20130415
  Transmission Date: 20140414
  Serious: No
  Sender: FDA-Public Use
  Company Number: US-JNJFOC-20130313990

PATIENT
  Age: 24 Year
  Sex: Female
  Weight: 100.7 kg

DRUGS (1)
  1. INVEGA SUSTENNA [Suspect]
     Indication: SCHIZOPHRENIA
     Route: 030
     Dates: start: 201210

REACTIONS (3)
  - Cellulitis [Unknown]
  - Injection site swelling [Unknown]
  - Injection site pain [Unknown]
